FAERS Safety Report 7393789-3 (Version None)
Quarter: 2011Q2

REPORT INFORMATION
  Report Type: 
  Country: None (occurrence: None)
  Receive Date: 20110405
  Receipt Date: 20110325
  Transmission Date: 20111010
  Serious: Yes (Hospitalization, Other)
  Sender: FDA-Public Use
  Company Number: CA-ELI_LILLY_AND_COMPANY-CA201103006960

PATIENT
  Sex: Female
  Weight: 75.283 kg

DRUGS (10)
  1. LOXAPINE [Concomitant]
     Dosage: 50 MG, EACH EVENING
  2. ASPIRIN [Concomitant]
  3. SYNTHROID [Concomitant]
     Dosage: 1 DF, UNK
  4. ZYPREXA [Suspect]
     Dosage: 25 MG, EACH EVENING
     Dates: start: 20061016
  5. LOXAPINE [Concomitant]
     Dosage: 25 MG, TID
  6. CLONAZEPAM [Concomitant]
  7. EPIVAL [Concomitant]
  8. ZYPREXA [Suspect]
     Indication: BIPOLAR DISORDER
     Dosage: 10 MG, EACH EVENING
     Dates: start: 19970529
  9. ZYPREXA [Suspect]
     Dosage: 5 MG, UNK
     Dates: start: 20061016
  10. EFEXOR XR                          /01233802/ [Concomitant]

REACTIONS (10)
  - DIABETES MELLITUS INADEQUATE CONTROL [None]
  - RETINOPATHY [None]
  - NEUROPATHY PERIPHERAL [None]
  - OVERDOSE [None]
  - DYSLIPIDAEMIA [None]
  - RENAL FAILURE CHRONIC [None]
  - NEPHROPATHY [None]
  - PANCREATITIS [None]
  - HYPERTENSION [None]
  - RECTAL HAEMORRHAGE [None]
